FAERS Safety Report 9852730 (Version 1)
Quarter: 2014Q1

REPORT INFORMATION
  Report Type: Spontaneous
  Country: US (occurrence: US)
  Receive Date: 20140129
  Receipt Date: 20140129
  Transmission Date: 20141002
  Serious: No
  Sender: FDA-Public Use
  Company Number: US-BAYER-2014-014892

PATIENT
  Age: 75 Year
  Sex: Male
  Weight: 102.4 kg

DRUGS (2)
  1. ALEVE CAPLET [Suspect]
     Indication: ARTHRITIS
     Dosage: 2 DF, QD
     Route: 048
     Dates: start: 201306
  2. SYNTHROID [Concomitant]

REACTIONS (1)
  - Incorrect drug administration duration [None]
